FAERS Safety Report 9659146 (Version 1)
Quarter: 2013Q4

REPORT INFORMATION
  Report Type: Spontaneous
  Country: IT (occurrence: IT)
  Receive Date: 20131031
  Receipt Date: 20131031
  Transmission Date: 20140711
  Serious: Yes (Hospitalization)
  Sender: FDA-Public Use
  Company Number: PHHY2013IT120469

PATIENT
  Age: 72 Year
  Sex: Male

DRUGS (5)
  1. LORMETAZEPAM [Suspect]
     Indication: MEDICATION ERROR
     Dosage: 10 ML, ONCE/SINGLE
     Dates: start: 20130905, end: 20130905
  2. OMEPRAZOLE [Suspect]
  3. KEPPRA [Concomitant]
  4. RAMIPRIL [Concomitant]
  5. DEXAMETHASONE [Concomitant]

REACTIONS (5)
  - Gait disturbance [Unknown]
  - Hypoglycaemia [Unknown]
  - Toxicity to various agents [Unknown]
  - Thrombocytopenia [Unknown]
  - Confusional state [Unknown]
